FAERS Safety Report 8395897-7 (Version None)
Quarter: 2012Q2

REPORT INFORMATION
  Report Type: 
  Country: None (occurrence: None)
  Receive Date: 20120529
  Receipt Date: 20120529
  Transmission Date: 20120825
  Serious: Yes (Hospitalization)
  Sender: FDA-Public Use
  Company Number: None

PATIENT
  Age: 60 Year
  Sex: Female
  Weight: 64.7 kg

DRUGS (8)
  1. METFORMIN HCL [Concomitant]
  2. ERLOTINIB HYDROCHLORIDE [Suspect]
     Indication: PANCREATIC CARCINOMA METASTATIC
     Dosage: 150 MG QD PO
     Route: 048
     Dates: start: 20120417
  3. ERLOTINIB HYDROCHLORIDE [Suspect]
     Indication: PANCREATIC CARCINOMA METASTATIC
     Dosage: 150 MG QD PO
     Route: 048
     Dates: start: 20120519
  4. GEMCITABINE [Suspect]
     Indication: PANCREATIC CARCINOMA METASTATIC
     Dosage: 1000 MG/M2 D1 + 8 OF 21 IV
     Route: 042
     Dates: start: 20120417
  5. GEMCITABINE [Suspect]
     Indication: PANCREATIC CARCINOMA METASTATIC
     Dosage: 1000 MG/M2 D1 + 8 OF 21 IV
     Route: 042
     Dates: start: 20120424
  6. GEMCITABINE [Suspect]
     Indication: PANCREATIC CARCINOMA METASTATIC
     Dosage: 1000 MG/M2 D1 + 8 OF 21 IV
     Route: 042
     Dates: start: 20120515
  7. GEMCITABINE [Suspect]
     Indication: PANCREATIC CARCINOMA METASTATIC
     Dosage: 1000 MG/M2 D1 + 8 OF 21 IV
     Route: 042
     Dates: start: 20120508
  8. ATENOLOL [Concomitant]

REACTIONS (4)
  - PYREXIA [None]
  - MICROCYTIC ANAEMIA [None]
  - DIARRHOEA [None]
  - REFUSAL OF TREATMENT BY PATIENT [None]
